FAERS Safety Report 13082159 (Version 4)
Quarter: 2017Q2

REPORT INFORMATION
  Report Type: Report from Study
  Country: US (occurrence: US)
  Receive Date: 20170103
  Receipt Date: 20170413
  Transmission Date: 20170830
  Serious: Yes (Hospitalization, Other)
  Sender: FDA-Public Use
  Company Number: US-BAYER-2016-245956

PATIENT
  Age: 59 Year
  Sex: Male

DRUGS (2)
  1. STIVARGA [Suspect]
     Active Substance: REGORAFENIB
     Indication: HEPATIC CANCER
     Dosage: 80 MG ONCE DAILY
     Route: 048
     Dates: start: 20161223
  2. STIVARGA [Suspect]
     Active Substance: REGORAFENIB
     Indication: HEPATIC CANCER
     Dosage: 80 MG ONCE DAILY FOR 21 DAYS EVERY 28 DAYS
     Route: 048

REACTIONS (7)
  - Abdominal pain upper [Recovered/Resolved]
  - Pneumonia [Unknown]
  - Musculoskeletal pain [None]
  - Drug ineffective for unapproved indication [None]
  - Diarrhoea [None]
  - Decreased appetite [None]
  - Off label use [None]

NARRATIVE: CASE EVENT DATE: 201612
